FAERS Safety Report 8248397-9 (Version None)
Quarter: 2012Q1

REPORT INFORMATION
  Report Type: 
  Country: None (occurrence: None)
  Receive Date: 20120330
  Receipt Date: 20120322
  Transmission Date: 20120608
  Serious: Yes (Other)
  Sender: FDA-Public Use
  Company Number: ZA-ABBOTT-12P-143-0918080-00

PATIENT
  Sex: Female

DRUGS (7)
  1. RITONAVIR [Suspect]
     Indication: HIV INFECTION
     Route: 048
     Dates: start: 20120315, end: 20120322
  2. LAMIVUDINE (EPIVIR HBV) [Concomitant]
     Indication: HIV INFECTION
     Dates: start: 20120315
  3. COTRIM [Concomitant]
     Indication: PRODUCT USED FOR UNKNOWN INDICATION
     Dates: start: 20120315
  4. RITONAVIR [Suspect]
     Route: 048
     Dates: start: 20120322
  5. ATAZANAVIR [Concomitant]
     Route: 048
     Dates: start: 20120322
  6. ABACAVIR [Concomitant]
     Indication: HIV INFECTION
     Dates: start: 20120315
  7. ATAZANAVIR [Concomitant]
     Indication: HIV INFECTION
     Route: 048
     Dates: start: 20120315, end: 20120322

REACTIONS (2)
  - OVERDOSE [None]
  - OCULAR ICTERUS [None]
